FAERS Safety Report 23899130 (Version 1)
Quarter: 2024Q2

REPORT INFORMATION
  Report Type: Spontaneous
  Country: US (occurrence: US)
  Receive Date: 20240526
  Receipt Date: 20240526
  Transmission Date: 20240715
  Serious: Yes (Hospitalization, Other)
  Sender: FDA-Public Use
  Company Number: US-DRL-USA-LIT/USA/24/0007403

PATIENT
  Age: 31 Year
  Sex: Female

DRUGS (4)
  1. CYCLOSPORINE [Suspect]
     Active Substance: CYCLOSPORINE
     Indication: Prophylaxis against transplant rejection
  2. AMLODIPINE [Suspect]
     Active Substance: AMLODIPINE BESYLATE
     Indication: Hypertension
  3. FUROSEMIDE [Suspect]
     Active Substance: FUROSEMIDE
     Indication: Hypertension
  4. HYDRALAZINE [Suspect]
     Active Substance: HYDRALAZINE HYDROCHLORIDE
     Indication: Hypertension

REACTIONS (10)
  - Acute kidney injury [Recovering/Resolving]
  - Haematuria [Unknown]
  - Proteinuria [Unknown]
  - Microangiopathy [Recovering/Resolving]
  - Tubulointerstitial nephritis [Recovering/Resolving]
  - Arteriosclerosis [Recovering/Resolving]
  - Toxicity to various agents [Unknown]
  - Nephropathy toxic [Unknown]
  - Drug ineffective [Unknown]
  - Disease progression [Unknown]
